FAERS Safety Report 11831255 (Version 1)
Quarter: 2015Q4

REPORT INFORMATION
  Report Type: Spontaneous
  Country: JP (occurrence: JP)
  Receive Date: 20151214
  Receipt Date: 20151214
  Transmission Date: 20160305
  Serious: Yes (Death, Life-Threatening)
  Sender: FDA-Public Use
  Company Number: JP-FRESENIUS KABI-FK201506456

PATIENT
  Age: 64 Year
  Sex: Male

DRUGS (10)
  1. TOCILIZUMAB [Suspect]
     Active Substance: TOCILIZUMAB
     Indication: RHEUMATOID ARTHRITIS
     Route: 065
  2. PAZUFLOXACIN [Concomitant]
     Active Substance: PAZUFLOXACIN
     Indication: ANTIBIOTIC THERAPY
     Route: 065
  3. ERYTHROMYCIN. [Concomitant]
     Active Substance: ERYTHROMYCIN
     Indication: ANTIBIOTIC THERAPY
     Route: 065
  4. SIVELESTAT SODIUM HYDRATE [Concomitant]
     Indication: ACUTE RESPIRATORY DISTRESS SYNDROME
     Route: 065
  5. ANTITHROMBIN III [Concomitant]
     Active Substance: ANTITHROMBIN III HUMAN
     Indication: DISSEMINATED INTRAVASCULAR COAGULATION
     Route: 065
  6. CYCLOSPORIN [Suspect]
     Active Substance: CYCLOSPORINE
     Indication: RHEUMATOID ARTHRITIS
     Route: 065
  7. METHYLPREDNISOLONE (MANUFACTURER UNKNOWN) [Suspect]
     Active Substance: METHYLPREDNISOLONE
     Indication: ACUTE RESPIRATORY DISTRESS SYNDROME
     Route: 065
  8. PREDNISOLONE. [Suspect]
     Active Substance: PREDNISOLONE
     Indication: RHEUMATOID ARTHRITIS
     Route: 065
  9. PAZUFLOXACIN [Concomitant]
     Active Substance: PAZUFLOXACIN
     Indication: ACUTE RESPIRATORY DISTRESS SYNDROME
  10. HEPARIN [Concomitant]
     Active Substance: HEPARIN SODIUM
     Indication: DISSEMINATED INTRAVASCULAR COAGULATION
     Route: 065

REACTIONS (5)
  - Ruptured cerebral aneurysm [Fatal]
  - Staphylococcal abscess [Not Recovered/Not Resolved]
  - Subarachnoid haemorrhage [Fatal]
  - Infective aneurysm [Fatal]
  - Staphylococcal sepsis [Not Recovered/Not Resolved]
